FAERS Safety Report 24394184 (Version 1)
Quarter: 2024Q4

REPORT INFORMATION
  Report Type: Spontaneous
  Country: MG (occurrence: MG)
  Receive Date: 20241004
  Receipt Date: 20241004
  Transmission Date: 20250115
  Serious: Yes (Hospitalization, Other)
  Sender: NOVITIUM PHARMA
  Company Number: MG-NOVITIUMPHARMA-2024MGNVP02055

PATIENT
  Age: 37 Year
  Sex: Male

DRUGS (1)
  1. DEXAMETHASONE [Suspect]
     Active Substance: DEXAMETHASONE
     Indication: Brain oedema

REACTIONS (3)
  - Hypotension [Unknown]
  - Gastrointestinal haemorrhage [Unknown]
  - Bradycardia [Recovered/Resolved]
